FAERS Safety Report 8402552-3 (Version None)
Quarter: 2012Q2

REPORT INFORMATION
  Report Type: 
  Country: None (occurrence: None)
  Receive Date: 20120601
  Receipt Date: 20120531
  Transmission Date: 20120825
  Serious: Yes (Other)
  Sender: FDA-Public Use
  Company Number: PHEH2012US007301

PATIENT
  Sex: Female
  Weight: 38.549 kg

DRUGS (4)
  1. CLONAZEPAM [Concomitant]
     Dosage: UNK UKN, UNK
  2. LITHIUM CARBONATE [Concomitant]
     Dosage: UNK UKN, UNK
  3. GILENYA [Suspect]
     Indication: RELAPSING-REMITTING MULTIPLE SCLEROSIS
     Dosage: 0.5 MG, QD
     Route: 048
     Dates: start: 20110201
  4. LEVOTHYROXINE SODIUM [Concomitant]
     Dosage: UNK UKN, UNK

REACTIONS (8)
  - TARDIVE DYSKINESIA [None]
  - ASTHENIA [None]
  - DYSPNOEA [None]
  - INFLUENZA [None]
  - MALAISE [None]
  - SOMNOLENCE [None]
  - FATIGUE [None]
  - COUGH [None]
